FAERS Safety Report 16286951 (Version 1)
Quarter: 2019Q2

REPORT INFORMATION
  Report Type: Spontaneous
  Country: US (occurrence: US)
  Receive Date: 20190508
  Receipt Date: 20190508
  Transmission Date: 20190711
  Serious: Yes (Other)
  Sender: FDA-Public Use
  Company Number: US-PFIZER INC-2019194342

PATIENT
  Age: 62 Year
  Sex: Male

DRUGS (2)
  1. LYRICA [Suspect]
     Active Substance: PREGABALIN
     Indication: NEUROPATHY PERIPHERAL
     Dosage: UNK
  2. TESTOSTERONE. [Concomitant]
     Active Substance: TESTOSTERONE
     Dosage: UNK

REACTIONS (8)
  - Pain [Unknown]
  - Fatigue [Unknown]
  - Insomnia [Unknown]
  - Frustration tolerance decreased [Unknown]
  - Anger [Unknown]
  - Personality change [Unknown]
  - Prostate cancer [Unknown]
  - Nausea [Unknown]

NARRATIVE: CASE EVENT DATE: 201902
